FAERS Safety Report 11123124 (Version 1)
Quarter: 2015Q2

REPORT INFORMATION
  Report Type: Spontaneous
  Country: US (occurrence: US)
  Receive Date: 20150519
  Receipt Date: 20150519
  Transmission Date: 20150821
  Serious: No
  Sender: FDA-Public Use
  Company Number: US-ABBVIE-14P-163-1277873-00

PATIENT
  Age: 27 Year
  Sex: Female
  Weight: 124.85 kg

DRUGS (1)
  1. PROMETRIUM [Suspect]
     Active Substance: PROGESTERONE
     Indication: MENSTRUATION IRREGULAR
     Dosage: TAKE FOR 10 DAYS EACH MONTH. AT BEDTIME
     Dates: start: 20140821

REACTIONS (1)
  - Vaginal haemorrhage [Not Recovered/Not Resolved]

NARRATIVE: CASE EVENT DATE: 20140825
